FAERS Safety Report 6974526-0 (Version None)
Quarter: 2010Q3

REPORT INFORMATION
  Report Type: 
  Country: None (occurrence: None)
  Receive Date: 20100909
  Receipt Date: 20090204
  Transmission Date: 20110219
  Serious: Yes (Hospitalization)
  Sender: FDA-Public Use
  Company Number: US-WYE-H06626808

PATIENT
  Sex: Female
  Weight: 90.8 kg

DRUGS (11)
  1. TORISEL [Suspect]
     Indication: RENAL CELL CARCINOMA
     Route: 042
     Dates: start: 20080101
  2. TORISEL [Suspect]
     Route: 042
     Dates: start: 20081024, end: 20081024
  3. PROTONIX [Concomitant]
     Indication: DYSPEPSIA
     Route: 048
  4. REGULAR INSULIN [Concomitant]
     Dosage: 70/30 MIXTURE IN THE MORNING AND 30/25 IN THE EVENING
  5. DECADRON [Concomitant]
  6. DECADRON [Concomitant]
     Route: 048
  7. SYNTHROID [Concomitant]
     Indication: HYPOTHYROIDISM
  8. BENICAR [Concomitant]
     Indication: HYPERTENSION
     Route: 048
  9. BENICAR [Concomitant]
  10. KEPPRA [Concomitant]
     Indication: PROPHYLAXIS
     Route: 048
  11. KEPPRA [Concomitant]
     Indication: CONVULSION

REACTIONS (1)
  - CEREBRAL HAEMORRHAGE [None]
